FAERS Safety Report 24043922 (Version 2)
Quarter: 2024Q4

REPORT INFORMATION
  Report Type: Report from Study
  Country: US (occurrence: US)
  Receive Date: 20240703
  Receipt Date: 20241001
  Transmission Date: 20250114
  Serious: No
  Sender: DECIPHERA PHARMACEUTICALS
  Company Number: US-DECIPHERA PHARMACEUTICALS LLC-2024US000543

PATIENT
  Age: 84 Year
  Sex: Male

DRUGS (2)
  1. QINLOCK [Suspect]
     Active Substance: RIPRETINIB
     Indication: Gastrointestinal stromal tumour
     Dosage: 150 MILLIGRAM, QD
     Route: 048
  2. QINLOCK [Suspect]
     Active Substance: RIPRETINIB
     Dosage: 150 MILLIGRAM, BID
     Route: 048
     Dates: end: 20240906

REACTIONS (3)
  - Ear infection [Unknown]
  - Melanocytic naevus [Unknown]
  - Drug ineffective [Unknown]
